FAERS Safety Report 5390180-6 (Version None)
Quarter: 2007Q3

REPORT INFORMATION
  Report Type: 
  Country: None (occurrence: None)
  Receive Date: 20070716
  Receipt Date: 20070716
  Transmission Date: 20080115
  Serious: Yes (Hospitalization)
  Sender: FDA-Public Use
  Company Number: None

PATIENT
  Sex: Male
  Weight: 106 kg

DRUGS (3)
  1. CYTARABINE [Suspect]
     Dosage: 1540 MG
  2. DAUNORUBICIN HCL [Suspect]
     Dosage: 297 MG
  3. MYLOTARG [Suspect]
     Dosage: 13.2 MG

REACTIONS (2)
  - FEBRILE NEUTROPENIA [None]
  - THROMBOCYTOPENIA [None]
